FAERS Safety Report 9254193 (Version 2)
Quarter: 2013Q2

REPORT INFORMATION
  Report Type: Spontaneous
  Country: BR (occurrence: BR)
  Receive Date: 20130425
  Receipt Date: 20130529
  Transmission Date: 20140414
  Serious: Yes (Other)
  Sender: FDA-Public Use
  Company Number: PHHY2013BR038667

PATIENT
  Sex: 0
  Weight: 120 kg

DRUGS (2)
  1. EXJADE [Suspect]
     Indication: PAROXYSMAL NOCTURNAL HAEMOGLOBINURIA
     Dosage: 500 MG, UNK
     Route: 048
  2. MAREVAN [Suspect]
     Indication: ANTICOAGULANT THERAPY
     Dosage: 5 MG, UNK
     Route: 048
     Dates: start: 201212

REACTIONS (1)
  - Thrombosis [Recovering/Resolving]
